FAERS Safety Report 4823317-5 (Version None)
Quarter: 2005Q4

REPORT INFORMATION
  Report Type: 
  Country: None (occurrence: None)
  Receive Date: 20051107
  Receipt Date: 20051024
  Transmission Date: 20060501
  Serious: Yes (Disabling, Other)
  Sender: FDA-Public Use
  Company Number: 2005126609

PATIENT
  Age: 45 Year
  Sex: Female

DRUGS (5)
  1. DEPO-PROVERA [Suspect]
     Indication: MENSTRUAL DISCOMFORT
     Dosage: SEE IMAGE
     Dates: start: 20020101, end: 20020101
  2. DEPO-PROVERA [Suspect]
     Indication: MENSTRUAL DISCOMFORT
     Dosage: SEE IMAGE
     Dates: start: 20041220, end: 20041220
  3. PREDNISONE [Concomitant]
  4. CHLOROQUINE (CHLOROQUINE) [Concomitant]
  5. NISULID (NIMESULIDE) [Concomitant]

REACTIONS (5)
  - ARTHRITIS [None]
  - CHEST PAIN [None]
  - OEDEMA PERIPHERAL [None]
  - RASH PAPULAR [None]
  - SYSTEMIC LUPUS ERYTHEMATOSUS [None]
